FAERS Safety Report 14945724 (Version 2)
Quarter: 2018Q2

REPORT INFORMATION
  Report Type: Report from Study
  Country: US (occurrence: US)
  Receive Date: 20180529
  Receipt Date: 20180619
  Transmission Date: 20180711
  Serious: Yes (Hospitalization, Other)
  Sender: FDA-Public Use
  Company Number: US-ASTRAZENECA-2017SF27767

PATIENT
  Age: 59 Year
  Sex: Female
  Weight: 91.6 kg

DRUGS (9)
  1. LYNPARZA [Suspect]
     Active Substance: OLAPARIB
     Indication: OVARIAN CANCER
     Route: 048
     Dates: start: 201801, end: 201803
  2. ELIQUIS [Concomitant]
     Active Substance: APIXABAN
     Route: 048
  3. ADOXA [Concomitant]
     Active Substance: DOXYCYCLINE
     Route: 048
  4. LYNPARZA [Suspect]
     Active Substance: OLAPARIB
     Indication: OVARIAN CANCER
     Route: 048
  5. LYNPARZA [Suspect]
     Active Substance: OLAPARIB
     Indication: OVARIAN CANCER
     Route: 048
     Dates: start: 20171201
  6. LYNPARZA [Suspect]
     Active Substance: OLAPARIB
     Indication: OVARIAN CANCER
     Dosage: 4 TABLETS
     Route: 048
  7. MAG-OX [Concomitant]
     Active Substance: MAGNESIUM OXIDE
     Route: 048
  8. LYNPARZA [Suspect]
     Active Substance: OLAPARIB
     Indication: OVARIAN CANCER
     Route: 048
     Dates: start: 20171118
  9. SODIUM HYPOCHLORITE [Concomitant]
     Active Substance: SODIUM HYPOCHLORITE
     Dosage: APPLY TOPICALLY TWO TIMES A DAY
     Route: 061

REACTIONS (9)
  - Vocal cord paralysis [Unknown]
  - Weight decreased [Not Recovered/Not Resolved]
  - Dysphagia [Unknown]
  - Dysphonia [Not Recovered/Not Resolved]
  - Ear pain [Unknown]
  - Decreased appetite [Not Recovered/Not Resolved]
  - Oropharyngeal pain [Unknown]
  - Hypophagia [Unknown]
  - Alopecia [Unknown]

NARRATIVE: CASE EVENT DATE: 20171210
